FAERS Safety Report 10170777 (Version 1)
Quarter: 2014Q2

REPORT INFORMATION
  Report Type: Spontaneous
  Country: IE (occurrence: IE)
  Receive Date: 20140514
  Receipt Date: 20140514
  Transmission Date: 20141212
  Serious: Yes (Other)
  Sender: FDA-Public Use
  Company Number: IE-AMGEN-IRLSP2014034187

PATIENT
  Age: 67 Year
  Sex: Female

DRUGS (14)
  1. NEULASTA [Suspect]
     Indication: LUNG NEOPLASM MALIGNANT
     Dosage: 6MG/0.6MLS POST CHEMO EVERY 3 WEEKS
     Route: 058
     Dates: start: 20140416
  2. TAXOL [Concomitant]
     Indication: LUNG NEOPLASM MALIGNANT
     Dosage: UNK
  3. CARBOPLATIN [Concomitant]
     Indication: LUNG NEOPLASM MALIGNANT
     Dosage: UNK
  4. OXYNORM [Concomitant]
     Dosage: UNK
  5. MOTILIUM                           /00498201/ [Concomitant]
     Dosage: UNK
  6. SENOKOT                            /00142201/ [Concomitant]
     Dosage: UNK
  7. LYRICA [Concomitant]
     Dosage: UNK
  8. DIAZEPAM [Concomitant]
     Dosage: UNK
  9. DUPHALAC                           /00163401/ [Concomitant]
     Dosage: UNK
  10. DEXAMETHASONE [Concomitant]
     Dosage: UNK
  11. OXYCONTIN [Concomitant]
     Dosage: UNK
  12. PANTOPRAZOLE [Concomitant]
     Dosage: UNK
  13. MEGACE [Concomitant]
     Dosage: UNK
  14. ACTONEL [Concomitant]
     Dosage: UNK

REACTIONS (2)
  - Transfusion [Unknown]
  - Adverse drug reaction [Unknown]
